FAERS Safety Report 17490365 (Version 1)
Quarter: 2020Q1

REPORT INFORMATION
  Report Type: Spontaneous
  Country: US (occurrence: US)
  Receive Date: 20200303
  Receipt Date: 20200303
  Transmission Date: 20200409
  Serious: No
  Sender: FDA-Public Use
  Company Number: US-AKORN PHARMACEUTICALS-2019AKN01109

PATIENT
  Age: 17 Year
  Sex: Female
  Weight: 78.91 kg

DRUGS (5)
  1. WOMENS VITAMIN [Concomitant]
  2. MYORISAN [Suspect]
     Active Substance: ISOTRETINOIN
     Indication: ACNE
     Dosage: 80 MG, 1X/DAY
     Route: 048
     Dates: start: 20190221, end: 20190428
  3. PROBIOTIC [Concomitant]
     Active Substance: PROBIOTICS NOS
  4. JOLESSA [Concomitant]
     Active Substance: ETHINYL ESTRADIOL\LEVONORGESTREL
  5. AZO CRANBERRY PILLS [Concomitant]

REACTIONS (6)
  - Vulvovaginal swelling [Recovered/Resolved]
  - Vulvovaginal mycotic infection [Unknown]
  - Off label use [Recovered/Resolved]
  - Vulvovaginal pruritus [Recovered/Resolved]
  - Vulvovaginal dryness [Recovered/Resolved]
  - Urinary tract infection [Unknown]

NARRATIVE: CASE EVENT DATE: 2019
